FAERS Safety Report 4528355-8 (Version None)
Quarter: 2004Q4

REPORT INFORMATION
  Report Type: 
  Country: None (occurrence: None)
  Receive Date: 20041130
  Receipt Date: 20040824
  Transmission Date: 20050328
  Serious: No
  Sender: FDA-Public Use
  Company Number: WAES 0408USA01884

PATIENT
  Age: 72 Year
  Sex: Female

DRUGS (2)
  1. ZETIA [Suspect]
     Indication: HYPERCHOLESTEROLAEMIA
     Dosage: 10 MG/DAILY/PO
     Route: 048
  2. INSULIN [Concomitant]

REACTIONS (4)
  - CHILLS [None]
  - COUGH [None]
  - FATIGUE [None]
  - LYMPHADENOPATHY [None]
